FAERS Safety Report 25759216 (Version 1)
Quarter: 2025Q3

REPORT INFORMATION
  Report Type: Spontaneous
  Country: SY (occurrence: SY)
  Receive Date: 20250904
  Receipt Date: 20250904
  Transmission Date: 20251021
  Serious: Yes (Other)
  Sender: ALKEM
  Company Number: SY-ALKEM LABORATORIES LIMITED-SY-ALKEM-2025-02804

PATIENT
  Age: 23 Year
  Sex: Male

DRUGS (1)
  1. MESALAMINE [Suspect]
     Active Substance: MESALAMINE
     Indication: Colitis ulcerative
     Route: 065

REACTIONS (2)
  - Tubulointerstitial nephritis [Unknown]
  - Renal failure [Unknown]
